FAERS Safety Report 9914788 (Version 1)
Quarter: 2014Q1

REPORT INFORMATION
  Report Type: Report from Study
  Country: GW (occurrence: GW)
  Receive Date: 20140220
  Receipt Date: 20140220
  Transmission Date: 20141002
  Serious: Yes (Death, Hospitalization)
  Sender: FDA-Public Use
  Company Number: GW-ABBVIE-14P-071-1203375-00

PATIENT
  Age: 26 Year
  Sex: Female

DRUGS (5)
  1. KALETRA 200/50 [Suspect]
     Indication: HIV INFECTION
     Dosage: DAILY DOSE:800/200MG
     Route: 048
     Dates: start: 20120229
  2. TENOFOVIR [Concomitant]
     Indication: HIV INFECTION
     Dates: start: 20120229
  3. EMTRICITABINE [Concomitant]
     Indication: HIV INFECTION
     Route: 048
     Dates: start: 20120229
  4. COTRIMOXAZOLE [Concomitant]
     Indication: PROPHYLAXIS
     Route: 048
     Dates: start: 20120229
  5. FOLIC ACID [Concomitant]
     Indication: VITAMIN SUPPLEMENTATION
     Route: 048
     Dates: start: 20120229

REACTIONS (3)
  - Cough [Fatal]
  - Diarrhoea [Fatal]
  - Abdominal pain upper [Fatal]
